FAERS Safety Report 5506533-9 (Version None)
Quarter: 2007Q4

REPORT INFORMATION
  Report Type: 
  Country: None (occurrence: None)
  Receive Date: 20071105
  Receipt Date: 20071101
  Transmission Date: 20080405
  Serious: Yes (Hospitalization)
  Sender: FDA-Public Use
  Company Number: B0488101A

PATIENT
  Age: 43 Year
  Sex: Male

DRUGS (8)
  1. SAWACILLIN [Suspect]
     Route: 048
     Dates: start: 20060810, end: 20060811
  2. DASEN [Suspect]
     Indication: PROPHYLAXIS
     Route: 048
     Dates: start: 20060810, end: 20060811
  3. LOXONIN [Suspect]
     Indication: ANTIPYRESIS
     Route: 048
     Dates: start: 20060810, end: 20060811
  4. ISODINE [Concomitant]
     Indication: PROPHYLAXIS
     Dates: start: 20060810, end: 20060811
  5. FRADIOMYCIN SULPHATE [Concomitant]
     Indication: PROPHYLAXIS
     Route: 048
     Dates: start: 20060810, end: 20060811
  6. GLIMICRON [Concomitant]
     Indication: DIABETES MELLITUS
     Dosage: 40MG TWICE PER DAY
     Route: 048
     Dates: start: 20031108
  7. MELBIN [Concomitant]
     Indication: DIABETES MELLITUS
     Dosage: 375MG PER DAY
     Route: 048
     Dates: start: 20031108
  8. UNSPECIFIED DRUG [Concomitant]
     Indication: OBESITY
     Dosage: 15MG PER DAY
     Route: 048
     Dates: start: 20060901

REACTIONS (4)
  - ERYTHEMA [None]
  - EYELID OEDEMA [None]
  - OEDEMA [None]
  - TOXIC SKIN ERUPTION [None]
